FAERS Safety Report 10012161 (Version 1)
Quarter: 2014Q1

REPORT INFORMATION
  Report Type: Spontaneous
  Country: US (occurrence: US)
  Receive Date: 20140314
  Receipt Date: 20140314
  Transmission Date: 20141002
  Serious: Yes (Hospitalization)
  Sender: FDA-Public Use
  Company Number: US-GLAXOSMITHKLINE-A1064875A

PATIENT
  Age: 70 Year
  Sex: Female

DRUGS (1)
  1. FLONASE [Suspect]
     Indication: MULTIPLE ALLERGIES
     Dosage: 50MCG UNKNOWN
     Route: 045
     Dates: start: 20050512

REACTIONS (2)
  - Renal surgery [Unknown]
  - Therapy cessation [Unknown]
